FAERS Safety Report 5259586-X (Version None)
Quarter: 2007Q1

REPORT INFORMATION
  Report Type: 
  Country: None (occurrence: None)
  Receive Date: 20070307
  Receipt Date: 20070307
  Transmission Date: 20070707
  Serious: Yes (Death, Life-Threatening, Hospitalization, Disabling, Other)
  Sender: FDA-Public Use
  Company Number: None

PATIENT
  Sex: Male
  Weight: 1.3608 kg

DRUGS (4)
  1. VIOCASE OR VIOKASE    ONE TENTH OF A GRAM    N/A [Suspect]
     Indication: CYSTIC FIBROSIS
     Dosage: 2 GRAMS  TWICE IN 6 HOURS  PO
     Route: 048
     Dates: start: 20061122, end: 20061122
  2. VIOCASE OR VIOKASE    ONE TENTH OF A GRAM    N/A [Suspect]
     Indication: PANCREATIC INSUFFICIENCY
     Dosage: 2 GRAMS  TWICE IN 6 HOURS  PO
     Route: 048
     Dates: start: 20061122, end: 20061122
  3. VIOCASE OR VIOKASE    ONE TENTH OF A GRAM    N/A [Suspect]
     Indication: CYSTIC FIBROSIS
     Dosage: 2 GRAMS  TWICE IN 6 HOURS  PO
     Route: 048
     Dates: start: 20061210, end: 20061221
  4. VIOCASE OR VIOKASE    ONE TENTH OF A GRAM    N/A [Suspect]
     Indication: PANCREATIC INSUFFICIENCY
     Dosage: 2 GRAMS  TWICE IN 6 HOURS  PO
     Route: 048
     Dates: start: 20061210, end: 20061221

REACTIONS (5)
  - ASPIRATION [None]
  - CARDIO-RESPIRATORY ARREST [None]
  - DRUG DISPENSING ERROR [None]
  - INCORRECT DOSE ADMINISTERED [None]
  - MEDICATION ERROR [None]
